FAERS Safety Report 22400726 (Version 1)
Quarter: 2023Q2

REPORT INFORMATION
  Report Type: Report from Study
  Country: US (occurrence: US)
  Receive Date: 20230602
  Receipt Date: 20230602
  Transmission Date: 20230722
  Serious: Yes (Hospitalization)
  Sender: FDA-Public Use
  Company Number: US-DSJP-DSU-2023-119622

PATIENT
  Sex: Female
  Weight: 75.9 kg

DRUGS (2)
  1. FAM-TRASTUZUMAB DERUXTECAN-NXKI [Suspect]
     Active Substance: FAM-TRASTUZUMAB DERUXTECAN-NXKI
     Indication: Neoplasm
     Dosage: 420 MG
     Route: 065
     Dates: start: 20230419, end: 20230419
  2. CERALASERTIB [Suspect]
     Active Substance: CERALASERTIB
     Indication: Neoplasm
     Dosage: 1680 MG
     Route: 065
     Dates: start: 20230419, end: 20230425

REACTIONS (4)
  - Pancytopenia [Unknown]
  - Intestinal obstruction [Unknown]
  - Hyponatraemia [Unknown]
  - Acute kidney injury [Unknown]

NARRATIVE: CASE EVENT DATE: 20230430
